FAERS Safety Report 4616120-2 (Version None)
Quarter: 2005Q1

REPORT INFORMATION
  Report Type: 
  Country: None (occurrence: None)
  Receive Date: 20050323
  Receipt Date: 20050315
  Transmission Date: 20050727
  Serious: Yes (Other)
  Sender: FDA-Public Use
  Company Number: US-JNJFOC-20050103153

PATIENT
  Sex: Male

DRUGS (1)
  1. REGRANEX [Suspect]
     Dates: start: 20040907

REACTIONS (1)
  - ENDOCARDITIS [None]
